FAERS Safety Report 18875359 (Version 16)
Quarter: 2022Q2

REPORT INFORMATION
  Report Type: Report from Study
  Country: BR (occurrence: BR)
  Receive Date: 20210210
  Receipt Date: 20220406
  Transmission Date: 20220721
  Serious: Yes (Hospitalization, Other)
  Sender: FDA-Public Use
  Company Number: NVSC2021BR022677

PATIENT
  Sex: Female
  Weight: 58 kg

DRUGS (24)
  1. ZOMETA [Suspect]
     Active Substance: ZOLEDRONIC ACID
     Indication: Metastases to bone
     Dosage: Q3MO
     Route: 065
     Dates: start: 201901
  2. ZOMETA [Suspect]
     Active Substance: ZOLEDRONIC ACID
     Indication: Breast cancer
     Dosage: Q3MO (AMPOULE)
     Route: 065
     Dates: start: 201911
  3. ZOMETA [Suspect]
     Active Substance: ZOLEDRONIC ACID
     Indication: Hormone therapy
  4. KISQALI [Suspect]
     Active Substance: RIBOCICLIB
     Indication: Product used for unknown indication
     Dosage: 600 MG, QD
     Route: 065
  5. KISQALI [Suspect]
     Active Substance: RIBOCICLIB
     Dosage: 3 TABLETS A DAY
     Route: 065
     Dates: start: 20220219
  6. KISQALI [Suspect]
     Active Substance: RIBOCICLIB
     Dosage: UNK (3 TABLETS)
     Route: 065
     Dates: start: 202101
  7. FULVESTRANT [Suspect]
     Active Substance: FULVESTRANT
     Indication: Product used for unknown indication
     Dosage: UNK
     Route: 065
     Dates: start: 201901
  8. FASLODEX [Suspect]
     Active Substance: FULVESTRANT
     Indication: Breast neoplasm
     Dosage: UNK
     Route: 065
     Dates: start: 201901
  9. FASLODEX [Suspect]
     Active Substance: FULVESTRANT
     Indication: Breast cancer
     Dosage: UNK, Q4W
     Route: 065
     Dates: start: 201911
  10. FASLODEX [Suspect]
     Active Substance: FULVESTRANT
     Indication: Hormone therapy
     Dosage: UNK
     Route: 065
  11. ANASTROZOLE [Suspect]
     Active Substance: ANASTROZOLE
     Indication: Product used for unknown indication
     Dosage: UNK
     Route: 065
  12. RIBOCICLIB [Concomitant]
     Active Substance: RIBOCICLIB
     Indication: Breast neoplasm
     Dosage: 200 MG
     Route: 065
  13. RIBOCICLIB [Concomitant]
     Active Substance: RIBOCICLIB
     Indication: Breast cancer
     Dosage: 3 DF, QD (FOR 21 DAYS AND 7 DAY-BREAK)
     Route: 065
     Dates: start: 20210104
  14. RIBOCICLIB [Concomitant]
     Active Substance: RIBOCICLIB
     Dosage: 3 DF, QD (FOR 21 DAYS AND 7 DAY-BREAK)
     Route: 065
     Dates: start: 20210104
  15. RIBOCICLIB [Concomitant]
     Active Substance: RIBOCICLIB
     Dosage: 3 DF
     Route: 065
     Dates: start: 20210104
  16. RIBOCICLIB [Concomitant]
     Active Substance: RIBOCICLIB
     Dosage: 3 DF
     Route: 065
     Dates: start: 202101
  17. RIBOCICLIB [Concomitant]
     Active Substance: RIBOCICLIB
     Dosage: UNK
     Route: 065
     Dates: start: 20210104
  18. RIBOCICLIB [Concomitant]
     Active Substance: RIBOCICLIB
     Dosage: UNK
     Route: 065
     Dates: start: 20210104
  19. RIBOCICLIB [Concomitant]
     Active Substance: RIBOCICLIB
     Dosage: 600 MG
     Route: 065
     Dates: start: 202101
  20. VITAMIN D [Concomitant]
     Active Substance: VITAMIN D NOS
     Indication: Product used for unknown indication
     Dosage: UNK
     Route: 048
  21. SYSTANE (HYPROMELLOSE 2910 (4000 MPA.S)) [Concomitant]
     Active Substance: HYPROMELLOSE 2910 (4000 MPA.S)
     Indication: Eye irritation
     Dosage: UNK, TID
     Route: 065
  22. INFLUENZA VIRUS VACCINE [Concomitant]
     Active Substance: INFLUENZA VIRUS VACCINE
     Indication: Product used for unknown indication
     Dosage: UNK
     Route: 065
     Dates: start: 2020
  23. TAMOXIFEN [Concomitant]
     Active Substance: TAMOXIFEN
     Indication: Product used for unknown indication
     Dosage: UNK
     Route: 065
  24. FLUCONAZOLE [Concomitant]
     Active Substance: FLUCONAZOLE
     Indication: Vulvovaginal discomfort
     Dosage: UNK
     Route: 065

REACTIONS (108)
  - Drug intolerance [Unknown]
  - Immunodeficiency [Recovered/Resolved]
  - Epistaxis [Recovering/Resolving]
  - Loss of consciousness [Unknown]
  - Haemangioma rupture [Unknown]
  - Spinal cord disorder [Unknown]
  - Liver injury [Unknown]
  - Spinal cord injury [Recovering/Resolving]
  - Metastases to bone [Recovered/Resolved]
  - Metastases to spine [Not Recovered/Not Resolved]
  - Metastasis [Unknown]
  - Metastases to bone [Unknown]
  - Metastases to liver [Not Recovered/Not Resolved]
  - Immunodeficiency [Unknown]
  - Ill-defined disorder [Not Recovered/Not Resolved]
  - Skin exfoliation [Recovering/Resolving]
  - Dry throat [Not Recovered/Not Resolved]
  - Alopecia [Not Recovered/Not Resolved]
  - Erythema [Not Recovered/Not Resolved]
  - Dry skin [Not Recovered/Not Resolved]
  - Vulvovaginal dryness [Not Recovered/Not Resolved]
  - Vulvovaginal discomfort [Not Recovered/Not Resolved]
  - Vulvovaginal burning sensation [Recovered/Resolved]
  - Nasal dryness [Not Recovered/Not Resolved]
  - Skin disorder [Not Recovered/Not Resolved]
  - Pruritus [Not Recovered/Not Resolved]
  - Neoplasm [Unknown]
  - Gait disturbance [Recovered/Resolved]
  - Tumour marker increased [Unknown]
  - Reflux gastritis [Unknown]
  - Discouragement [Unknown]
  - Visual impairment [Not Recovered/Not Resolved]
  - Greater trochanteric pain syndrome [Unknown]
  - Feeding disorder [Unknown]
  - Haemangioma [Unknown]
  - Disease progression [Not Recovered/Not Resolved]
  - Weight decreased [Unknown]
  - Illness [Unknown]
  - Aphthous ulcer [Unknown]
  - Oral herpes [Unknown]
  - Swelling of eyelid [Unknown]
  - Sinusitis [Unknown]
  - Rhinitis [Unknown]
  - Rhinitis allergic [Unknown]
  - Eyelid sensory disorder [Unknown]
  - Vein disorder [Recovered/Resolved]
  - Frostbite [Unknown]
  - Ocular hyperaemia [Unknown]
  - Haemorrhoids [Unknown]
  - Hair texture abnormal [Unknown]
  - Trichorrhexis [Unknown]
  - Eyelid ptosis [Unknown]
  - Rectocele [Not Recovered/Not Resolved]
  - Gastrointestinal disorder [Not Recovered/Not Resolved]
  - Hiatus hernia [Unknown]
  - Nasal pruritus [Unknown]
  - Dry eye [Not Recovered/Not Resolved]
  - Head discomfort [Unknown]
  - PIK3CA-activated mutation [Unknown]
  - Swelling [Unknown]
  - Abdominal discomfort [Not Recovered/Not Resolved]
  - Head injury [Recovering/Resolving]
  - Nasal injury [Not Recovered/Not Resolved]
  - Wound [Not Recovered/Not Resolved]
  - Skin lesion [Not Recovered/Not Resolved]
  - Injury [Not Recovered/Not Resolved]
  - Oestrogen deficiency [Not Recovered/Not Resolved]
  - Panic disorder [Recovering/Resolving]
  - Nasal discomfort [Unknown]
  - Haematoma [Recovering/Resolving]
  - Asthenopia [Unknown]
  - Hypermetropia [Unknown]
  - Astigmatism [Unknown]
  - Petechiae [Unknown]
  - Vulvovaginal exfoliation [Unknown]
  - Dyspnoea [Unknown]
  - Skeletal injury [Recovered/Resolved]
  - Phlebitis [Unknown]
  - Oral pain [Unknown]
  - Nasal disorder [Unknown]
  - Eye swelling [Unknown]
  - Anosmia [Unknown]
  - Movement disorder [Unknown]
  - Pain [Unknown]
  - Malaise [Recovered/Resolved]
  - Chills [Not Recovered/Not Resolved]
  - Paraesthesia [Unknown]
  - White blood cell count decreased [Unknown]
  - Neutrophil count decreased [Unknown]
  - Pyrexia [Unknown]
  - Fatigue [Unknown]
  - Constipation [Not Recovered/Not Resolved]
  - Dry mouth [Unknown]
  - Application site bruise [Unknown]
  - Application site pain [Unknown]
  - Product availability issue [Unknown]
  - Ear disorder [Not Recovered/Not Resolved]
  - Urinary tract infection [Recovered/Resolved]
  - Skin atrophy [Unknown]
  - Lip dry [Unknown]
  - Pain [Recovered/Resolved]
  - Pain in extremity [Recovered/Resolved]
  - Bone pain [Recovered/Resolved]
  - Dysstasia [Unknown]
  - Application site swelling [Recovering/Resolving]
  - Arthralgia [Recovered/Resolved]
  - Insomnia [Unknown]
  - Drug ineffective [Not Recovered/Not Resolved]

NARRATIVE: CASE EVENT DATE: 20190101
